FAERS Safety Report 5501680-X (Version None)
Quarter: 2007Q4

REPORT INFORMATION
  Report Type: 
  Country: None (occurrence: None)
  Receive Date: 20071026
  Receipt Date: 20071026
  Transmission Date: 20080405
  Serious: No
  Sender: FDA-Public Use
  Company Number: None

PATIENT
  Age: 83 Year
  Sex: Female
  Weight: 89.8122 kg

DRUGS (2)
  1. CEFAZOLIN [Suspect]
     Indication: OSTEOMYELITIS
     Dosage: 2 GMS EVERY 8 HOURS IV
     Route: 042
     Dates: start: 20071018, end: 20071022
  2. CEFAZOLIN [Suspect]

REACTIONS (1)
  - RASH [None]
